FAERS Safety Report 26198003 (Version 1)
Quarter: 2025Q4

REPORT INFORMATION
  Report Type: Spontaneous
  Country: EU (occurrence: EU)
  Receive Date: 20251224
  Receipt Date: 20251224
  Transmission Date: 20260118
  Serious: Yes (Other)
  Sender: MYLAN
  Company Number: None

PATIENT
  Age: 65 Year
  Sex: Male
  Weight: 65 kg

DRUGS (28)
  1. METHOTREXATE [Suspect]
     Active Substance: METHOTREXATE
     Indication: Diffuse large B-cell lymphoma
     Dosage: 5600 MILLIGRAM, TOTAL, C1
     Dates: start: 20251030, end: 20251030
  2. METHOTREXATE [Suspect]
     Active Substance: METHOTREXATE
     Dosage: 5600 MILLIGRAM, TOTAL, C1
     Route: 042
     Dates: start: 20251030, end: 20251030
  3. METHOTREXATE [Suspect]
     Active Substance: METHOTREXATE
     Dosage: 5600 MILLIGRAM, TOTAL, C1
     Route: 042
     Dates: start: 20251030, end: 20251030
  4. METHOTREXATE [Suspect]
     Active Substance: METHOTREXATE
     Dosage: 5600 MILLIGRAM, TOTAL, C1
     Dates: start: 20251030, end: 20251030
  5. RITUXIMAB [Concomitant]
     Active Substance: RITUXIMAB
     Indication: Diffuse large B-cell lymphoma
     Dosage: 700 MILLIGRAM, TOTAL
     Dates: start: 20251030, end: 20251030
  6. RITUXIMAB [Concomitant]
     Active Substance: RITUXIMAB
     Dosage: 700 MILLIGRAM, TOTAL
     Route: 042
     Dates: start: 20251030, end: 20251030
  7. RITUXIMAB [Concomitant]
     Active Substance: RITUXIMAB
     Dosage: 700 MILLIGRAM, TOTAL
     Route: 042
     Dates: start: 20251030, end: 20251030
  8. RITUXIMAB [Concomitant]
     Active Substance: RITUXIMAB
     Dosage: 700 MILLIGRAM, TOTAL
     Dates: start: 20251030, end: 20251030
  9. METHYLPREDNISOLONE [Concomitant]
     Active Substance: METHYLPREDNISOLONE
     Indication: Diffuse large B-cell lymphoma
     Dosage: 60 MILLIGRAM, QD, C1
     Dates: start: 20251030, end: 20251103
  10. METHYLPREDNISOLONE [Concomitant]
     Active Substance: METHYLPREDNISOLONE
     Dosage: 60 MILLIGRAM, QD, C1
     Route: 042
     Dates: start: 20251030, end: 20251103
  11. METHYLPREDNISOLONE [Concomitant]
     Active Substance: METHYLPREDNISOLONE
     Dosage: 60 MILLIGRAM, QD, C1
     Route: 042
     Dates: start: 20251030, end: 20251103
  12. METHYLPREDNISOLONE [Concomitant]
     Active Substance: METHYLPREDNISOLONE
     Dosage: 60 MILLIGRAM, QD, C1
     Dates: start: 20251030, end: 20251103
  13. PROCARBAZINE [Concomitant]
     Active Substance: PROCARBAZINE
     Indication: Diffuse large B-cell lymphoma
     Dosage: 200 MILLIGRAM, QD, C1
     Route: 061
     Dates: start: 20251030, end: 20251106
  14. PROCARBAZINE [Concomitant]
     Active Substance: PROCARBAZINE
     Dosage: 200 MILLIGRAM, QD, C1
     Route: 048
     Dates: start: 20251030, end: 20251106
  15. PROCARBAZINE [Concomitant]
     Active Substance: PROCARBAZINE
     Dosage: 200 MILLIGRAM, QD, C1
     Route: 048
     Dates: start: 20251030, end: 20251106
  16. PROCARBAZINE [Concomitant]
     Active Substance: PROCARBAZINE
     Dosage: 200 MILLIGRAM, QD, C1
     Route: 061
     Dates: start: 20251030, end: 20251106
  17. POLARAMINE [Concomitant]
     Active Substance: DEXCHLORPHENIRAMINE MALEATE
     Indication: Chemotherapy side effect prophylaxis
     Dosage: 1 DOSAGE FORM, TOTAL, SCORED TABLET
     Route: 061
     Dates: start: 20251030, end: 20251030
  18. POLARAMINE [Concomitant]
     Active Substance: DEXCHLORPHENIRAMINE MALEATE
     Dosage: 1 DOSAGE FORM, TOTAL, SCORED TABLET
     Route: 048
     Dates: start: 20251030, end: 20251030
  19. POLARAMINE [Concomitant]
     Active Substance: DEXCHLORPHENIRAMINE MALEATE
     Dosage: 1 DOSAGE FORM, TOTAL, SCORED TABLET
     Route: 048
     Dates: start: 20251030, end: 20251030
  20. POLARAMINE [Concomitant]
     Active Substance: DEXCHLORPHENIRAMINE MALEATE
     Dosage: 1 DOSAGE FORM, TOTAL, SCORED TABLET
     Route: 061
     Dates: start: 20251030, end: 20251030
  21. VINCRISTINE SULFATE [Concomitant]
     Active Substance: VINCRISTINE SULFATE
     Dosage: 2 MILLIGRAM, TOTAL, C1
     Dates: start: 20251030, end: 20251030
  22. VINCRISTINE SULFATE [Concomitant]
     Active Substance: VINCRISTINE SULFATE
     Dosage: 2 MILLIGRAM, TOTAL, C1
     Route: 042
     Dates: start: 20251030, end: 20251030
  23. VINCRISTINE SULFATE [Concomitant]
     Active Substance: VINCRISTINE SULFATE
     Dosage: 2 MILLIGRAM, TOTAL, C1
     Route: 042
     Dates: start: 20251030, end: 20251030
  24. VINCRISTINE SULFATE [Concomitant]
     Active Substance: VINCRISTINE SULFATE
     Dosage: 2 MILLIGRAM, TOTAL, C1
     Dates: start: 20251030, end: 20251030
  25. ONDANSETRON [Concomitant]
     Active Substance: ONDANSETRON
     Dosage: 16 MILLIGRAM, QD
     Route: 061
     Dates: start: 20251030, end: 20251109
  26. ONDANSETRON [Concomitant]
     Active Substance: ONDANSETRON
     Dosage: 16 MILLIGRAM, QD
     Route: 048
     Dates: start: 20251030, end: 20251109
  27. ONDANSETRON [Concomitant]
     Active Substance: ONDANSETRON
     Dosage: 16 MILLIGRAM, QD
     Route: 048
     Dates: start: 20251030, end: 20251109
  28. ONDANSETRON [Concomitant]
     Active Substance: ONDANSETRON
     Dosage: 16 MILLIGRAM, QD
     Route: 061
     Dates: start: 20251030, end: 20251109

REACTIONS (1)
  - Hepatic cytolysis [Recovering/Resolving]

NARRATIVE: CASE EVENT DATE: 20251103
